FAERS Safety Report 5544337-1 (Version None)
Quarter: 2007Q4

REPORT INFORMATION
  Report Type: 
  Country: None (occurrence: None)
  Receive Date: 20071206
  Receipt Date: 20071130
  Transmission Date: 20080405
  Serious: Yes (Death)
  Sender: FDA-Public Use
  Company Number: 163-20785-07091492

PATIENT
  Age: 68 Year
  Sex: Female

DRUGS (2)
  1. THALOMID [Suspect]
     Indication: MULTIPLE MYELOMA
     Dosage: 200 MG, 2 IN 1 D, ORAL; 200 MG, 4 IN 1 D, ORAL
     Route: 048
     Dates: start: 20040728, end: 20040801
  2. THALOMID [Suspect]
     Indication: MULTIPLE MYELOMA
     Dosage: 200 MG, 2 IN 1 D, ORAL; 200 MG, 4 IN 1 D, ORAL
     Route: 048
     Dates: start: 20070808, end: 20070901

REACTIONS (1)
  - CARDIOPULMONARY FAILURE [None]
